FAERS Safety Report 7099355-1 (Version None)
Quarter: 2010Q4

REPORT INFORMATION
  Report Type: 
  Country: None (occurrence: None)
  Receive Date: 20101112
  Receipt Date: 20101102
  Transmission Date: 20110411
  Serious: Yes (Hospitalization)
  Sender: FDA-Public Use
  Company Number: CA-JNJFOC-20101101895

PATIENT
  Sex: Female
  Weight: 52 kg

DRUGS (3)
  1. REMICADE [Suspect]
     Indication: CROHN'S DISEASE
     Route: 042
  2. REMICADE [Suspect]
     Dosage: FOR APPOXIMATELY 10 YEARS
     Route: 042
  3. SOLU-CORTEF [Concomitant]
     Indication: PREMEDICATION
     Route: 042

REACTIONS (3)
  - ABDOMINAL PAIN [None]
  - NAUSEA [None]
  - VOMITING [None]
